FAERS Safety Report 26039302 (Version 1)
Quarter: 2025Q4

REPORT INFORMATION
  Report Type: Spontaneous
  Country: EU (occurrence: EU)
  Receive Date: 20251113
  Receipt Date: 20251113
  Transmission Date: 20260117
  Serious: Yes (Other)
  Sender: AUROBINDO
  Company Number: EU-RECORDATI-2025007622

PATIENT
  Age: 4 Year
  Sex: Female

DRUGS (3)
  1. AZITHROMYCIN [Suspect]
     Active Substance: AZITHROMYCIN
     Indication: Antibiotic therapy
     Dosage: UNK
     Route: 065
  2. CEFTAZIDIME [Suspect]
     Active Substance: CEFTAZIDIME
     Indication: Antibiotic therapy
     Dosage: 150 MILLIGRAM/KILOGRAM, ONCE A DAY
     Route: 065
  3. AMIKACIN [Suspect]
     Active Substance: AMIKACIN
     Indication: Antibiotic therapy
     Dosage: UNK
     Route: 042

REACTIONS (2)
  - Renal abscess [Unknown]
  - Off label use [Recovered/Resolved]
